FAERS Safety Report 7260160-4 (Version None)
Quarter: 2011Q1

REPORT INFORMATION
  Report Type: 
  Country: None (occurrence: None)
  Receive Date: 20110130
  Receipt Date: 20101007
  Transmission Date: 20110831
  Serious: No
  Sender: FDA-Public Use
  Company Number: US-ABBOTT-10P-163-0676865-00

PATIENT
  Age: 60 Year
  Sex: Female

DRUGS (5)
  1. HUMIRA [Suspect]
     Indication: CROHN'S DISEASE
     Route: 058
     Dates: start: 20100701
  2. PROZAC [Concomitant]
     Indication: PRODUCT USED FOR UNKNOWN INDICATION
     Route: 048
  3. CLONAZEPAM [Concomitant]
     Indication: PRODUCT USED FOR UNKNOWN INDICATION
     Dosage: AT BEDTIME
     Route: 048
  4. LAMOTRIGINE [Concomitant]
     Indication: PRODUCT USED FOR UNKNOWN INDICATION
     Route: 048
  5. LAMICTAL [Concomitant]
     Indication: PRODUCT USED FOR UNKNOWN INDICATION
     Route: 048

REACTIONS (1)
  - DRUG INEFFECTIVE [None]
